FAERS Safety Report 4460964-7 (Version None)
Quarter: 2004Q3

REPORT INFORMATION
  Report Type: 
  Country: None (occurrence: None)
  Receive Date: 20040928
  Receipt Date: 20040618
  Transmission Date: 20050211
  Serious: No
  Sender: FDA-Public Use
  Company Number: US-GLAXOSMITHKLINE-A0515187A

PATIENT
  Age: 56 Year
  Sex: Female
  Weight: 118.2 kg

DRUGS (2)
  1. ADVAIR DISKUS 100/50 [Suspect]
     Indication: ASTHMA
     Route: 055
     Dates: start: 20020101
  2. SEREVENT [Suspect]
     Indication: ASTHMA
     Route: 055
     Dates: start: 20040401, end: 20040601

REACTIONS (3)
  - DRY MOUTH [None]
  - LARYNGITIS [None]
  - PHARYNX DISCOMFORT [None]
